FAERS Safety Report 6614848-6 (Version None)
Quarter: 2010Q1

REPORT INFORMATION
  Report Type: 
  Country: None (occurrence: None)
  Receive Date: 20100305
  Receipt Date: 20100225
  Transmission Date: 20100710
  Serious: Yes (Other)
  Sender: FDA-Public Use
  Company Number: US-BIOGENIDEC-2010BI004963

PATIENT
  Age: 52 Year
  Sex: Female

DRUGS (3)
  1. TYSABRI [Suspect]
     Indication: MULTIPLE SCLEROSIS
     Route: 042
     Dates: start: 20071101, end: 20090301
  2. TYSABRI [Suspect]
     Route: 042
     Dates: start: 20091101
  3. PROVIGIL [Concomitant]
     Indication: SOMNOLENCE

REACTIONS (7)
  - APPENDICITIS [None]
  - DECUBITUS ULCER [None]
  - FALL [None]
  - FIBULA FRACTURE [None]
  - MULTIPLE SCLEROSIS RELAPSE [None]
  - OSTEOMYELITIS [None]
  - TIBIA FRACTURE [None]
